FAERS Safety Report 16175525 (Version 1)
Quarter: 2019Q2

REPORT INFORMATION
  Report Type: Spontaneous
  Country: CN (occurrence: CN)
  Receive Date: 20190409
  Receipt Date: 20190409
  Transmission Date: 20190711
  Serious: Yes (Other)
  Sender: FDA-Public Use
  Company Number: CN-BAXTER-2019BAX006964

PATIENT
  Age: 43 Year
  Sex: Female
  Weight: 58.5 kg

DRUGS (10)
  1. 0.9% SODIUM CHLORIDE INJECTION [Suspect]
     Active Substance: SODIUM CHLORIDE
     Dosage: DOSAGE FORM: INJECTION, AC CHEMOTHERAPEUTIC PROTOCOL, ENDOXAN + SODIUM CHLORIDE, DOSE RE-INTRODUCED
     Route: 041
  2. DUOMEISU [Suspect]
     Active Substance: DOXORUBICIN HYDROCHLORIDE
     Indication: BREAST CANCER
     Dosage: SELF-PREPARED, DOSAGE FORM: LIPOSOME INJECTION, AC CHEMOTHERAPEUTIC PROTOCOL, CYCLE 1, DUOMEISU + GL
     Route: 041
     Dates: start: 20190221, end: 20190221
  3. DEXAMETHASONE SODIUM PHOSPHATE. [Suspect]
     Active Substance: DEXAMETHASONE SODIUM PHOSPHATE
     Indication: ANTIEMETIC SUPPORTIVE CARE
     Route: 040
     Dates: start: 20190221, end: 20190221
  4. 0.9% SODIUM CHLORIDE INJECTION [Suspect]
     Active Substance: SODIUM CHLORIDE
     Indication: MEDICATION DILUTION
     Dosage: DOSAGE FORM: INJECTION, AC CHEMOTHERAPEUTIC PROTOCOL, CYCLE 1, ENDOXAN + SODIUM CHLORIDE
     Route: 041
     Dates: start: 20190221, end: 20190221
  5. 5% GLUCOSE  INJECTION [Suspect]
     Active Substance: DEXTROSE
     Indication: MEDICATION DILUTION
     Dosage: DOSAGE FORM: INJECTION, AC CHEMOTHERAPEUTIC PROTOCOL, CYCLE 1, DUOMEISU + GLUCOSE
     Route: 041
     Dates: start: 20190221, end: 20190221
  6. DUOMEISU [Suspect]
     Active Substance: DOXORUBICIN HYDROCHLORIDE
     Dosage: SELF-PREPARED, DOSAGE FORM: LIPOSOME INJECTION, AC CHEMOTHERAPEUTIC PROTOCOL, DUOMEISU + GLUCOSE, DO
     Route: 041
  7. ENDOXAN [Suspect]
     Active Substance: CYCLOPHOSPHAMIDE
     Dosage: DOSAGE FORM: INJECTION, AC CHEMOTHERAPEUTIC PROTOCOL, ENDOXAN + SODIUM CHLORIDE, DOSE RE-INTRODUCED
     Route: 041
  8. ENDOXAN [Suspect]
     Active Substance: CYCLOPHOSPHAMIDE
     Indication: BREAST CANCER
     Dosage: DOSAGE FORM: INJECTION, AC CHEMOTHERAPEUTIC PROTOCOL, CYCLE 1, ENDOXAN + SODIUM CHLORIDE
     Route: 041
     Dates: start: 20190221, end: 20190221
  9. PALONOSETRON HYDROCHLORIDE. [Suspect]
     Active Substance: PALONOSETRON HYDROCHLORIDE
     Indication: ANTIEMETIC SUPPORTIVE CARE
     Route: 040
     Dates: start: 20190221, end: 20190221
  10. 5% GLUCOSE  INJECTION [Suspect]
     Active Substance: DEXTROSE
     Dosage: DOSAGE FORM: INJECTION, AC CHEMOTHERAPEUTIC PROTOCOL, DUOMEISU + GLUCOSE, DOSE RE-INTRODUCED
     Route: 041

REACTIONS (4)
  - Nausea [Recovered/Resolved]
  - Vomiting [Recovered/Resolved]
  - Abdominal discomfort [Recovering/Resolving]
  - Asthenia [Recovering/Resolving]

NARRATIVE: CASE EVENT DATE: 20190223
